FAERS Safety Report 4380732-4 (Version None)
Quarter: 2004Q2

REPORT INFORMATION
  Report Type: 
  Country: None (occurrence: None)
  Receive Date: 20040618
  Receipt Date: 20040519
  Transmission Date: 20050107
  Serious: Yes (Other)
  Sender: FDA-Public Use
  Company Number: PHBS2004BR06635

PATIENT
  Age: 72 Year
  Sex: Female

DRUGS (7)
  1. GLEEVEC [Suspect]
     Indication: CHRONIC MYELOID LEUKAEMIA
     Dosage: 400 MG/DAY
     Route: 048
  2. GLEEVEC [Suspect]
     Dosage: 300 MG/DAY
     Route: 048
  3. HYDROXYZINE [Concomitant]
  4. BISOPROLOL W/HYDROCHLOROTHIAZIDE [Concomitant]
  5. PURAN T4 [Concomitant]
  6. MOTILIUM ^JANSSEN^ [Concomitant]
  7. PANTOZOL [Concomitant]

REACTIONS (4)
  - ACTIVATED PARTIAL THROMBOPLASTIN TIME PROLONGED [None]
  - BONE MARROW TOXICITY [None]
  - HYPOAESTHESIA [None]
  - SKIN LESION [None]
